FAERS Safety Report 5805003-8 (Version None)
Quarter: 2008Q3

REPORT INFORMATION
  Report Type: 
  Country: None (occurrence: None)
  Receive Date: 20080707
  Receipt Date: 20070809
  Transmission Date: 20090109
  Serious: Yes (Other)
  Sender: FDA-Public Use
  Company Number: 511382

PATIENT
  Age: 31 Year
  Sex: Female
  Weight: 74.8 kg

DRUGS (6)
  1. MYCOPHENOLATE MOFETIL [Suspect]
     Indication: RENAL TRANSPLANT
     Dates: start: 20061001
  2. PROCRIT [Suspect]
     Indication: ANAEMIA POSTOPERATIVE
     Dosage: 10000 IU 3 PER WEEK SUBCUTANEOUS
     Route: 058
     Dates: start: 20061101
  3. IMMUNOSUPPORESSANTS NOS (IMMUNOSUPPRESSANT NOS) [Concomitant]
  4. CORTICOSTEROID NOS (CORTICOSTEROID NOS) [Concomitant]
  5. ANTIFUNGAL AGENTS (ANTIFUNGAL AGENTS) [Concomitant]
  6. ANTIBACTERIAL (ANTIMICROBIAL NOS) [Concomitant]

REACTIONS (1)
  - HAEMOGLOBIN DECREASED [None]
